FAERS Safety Report 9030956 (Version 5)
Quarter: 2013Q1

REPORT INFORMATION
  Report Type: Spontaneous
  Country: US (occurrence: US)
  Receive Date: 20130123
  Receipt Date: 20130301
  Transmission Date: 20140127
  Serious: Yes (Hospitalization)
  Sender: FDA-Public Use
  Company Number: US-BAXTER-2013BAX002243

PATIENT
  Age: 70 None
  Sex: Male

DRUGS (3)
  1. DIANEAL LOW CALCIUM [Suspect]
     Indication: PERITONEAL DIALYSIS
     Route: 033
     Dates: start: 20130210
  2. DIANEAL LOW CALCIUM (ULTRABAG) [Suspect]
     Indication: PERITONEAL DIALYSIS
     Route: 033
     Dates: end: 20130112
  3. DIANEAL LOW CALCIUM (ULTRABAG) [Suspect]
     Route: 033
     Dates: start: 20130210

REACTIONS (8)
  - Inguinal hernia [Recovering/Resolving]
  - Peritoneal dialysis complication [Recovered/Resolved]
  - Peritoneal perforation [Recovered/Resolved]
  - Fall [Recovered/Resolved]
  - Chest injury [Recovered/Resolved]
  - Contusion [Recovered/Resolved]
  - Procedural pain [Not Recovered/Not Resolved]
  - Discomfort [Unknown]
